FAERS Safety Report 8079899-6 (Version None)
Quarter: 2012Q1

REPORT INFORMATION
  Report Type: 
  Country: None (occurrence: None)
  Receive Date: 20120128
  Receipt Date: 20110721
  Transmission Date: 20120608
  Serious: No
  Sender: FDA-Public Use
  Company Number: US-ABBOTT-11P-163-0841049-00

PATIENT
  Sex: Male
  Weight: 65.83 kg

DRUGS (5)
  1. PREDNISONE TAB [Concomitant]
     Indication: COLITIS ULCERATIVE
  2. PENTASA [Concomitant]
     Indication: CROHN'S DISEASE
  3. PREDNISONE TAB [Concomitant]
     Indication: CROHN'S DISEASE
  4. PENTASA [Concomitant]
     Indication: COLITIS ULCERATIVE
  5. HUMIRA [Suspect]
     Indication: CROHN'S DISEASE
     Dates: start: 20110501

REACTIONS (1)
  - LYMPHADENOPATHY [None]
